FAERS Safety Report 6888270-1 (Version None)
Quarter: 2010Q3

REPORT INFORMATION
  Report Type: 
  Country: None (occurrence: None)
  Receive Date: 20100730
  Receipt Date: 20100723
  Transmission Date: 20110219
  Serious: Yes (Other)
  Sender: FDA-Public Use
  Company Number: US-BAXTER-2010BH019787

PATIENT
  Age: 51 Year
  Sex: Female

DRUGS (1)
  1. REGLAN [Suspect]
     Indication: PRODUCT USED FOR UNKNOWN INDICATION
     Route: 042
     Dates: start: 20100419, end: 20100419

REACTIONS (6)
  - DIARRHOEA [None]
  - FATIGUE [None]
  - MUSCLE TIGHTNESS [None]
  - MUSCLE TWITCHING [None]
  - TREMOR [None]
  - VAGINAL HAEMORRHAGE [None]
